FAERS Safety Report 9293706 (Version 2)
Quarter: 2013Q2

REPORT INFORMATION
  Report Type: Report from Study
  Country: US (occurrence: US)
  Receive Date: 20130516
  Receipt Date: 20130521
  Transmission Date: 20140414
  Serious: Yes (Hospitalization)
  Sender: FDA-Public Use
  Company Number: US-JNJFOC-20130505627

PATIENT
  Age: 7 Year
  Sex: Female
  Weight: 19.7 kg

DRUGS (12)
  1. REMICADE [Suspect]
     Indication: INFLAMMATORY BOWEL DISEASE
     Route: 042
     Dates: start: 20110728
  2. 5-ASA [Concomitant]
     Route: 054
  3. AZATHIOPRINE [Concomitant]
     Route: 065
  4. VITAMIN D [Concomitant]
     Route: 065
  5. MULTIVITAMINS [Concomitant]
     Route: 065
  6. FOLIC ACID [Concomitant]
     Route: 065
  7. FERROUS SULPHATE [Concomitant]
     Route: 065
  8. LIDOCAINE + PRILOCAINE [Concomitant]
     Route: 065
  9. LANSOPRAZOLE [Concomitant]
     Route: 065
  10. ZITHROMAX [Concomitant]
     Route: 065
  11. ONDANSETRON [Concomitant]
     Route: 065
  12. SIMETHICONE [Concomitant]
     Route: 065

REACTIONS (1)
  - Gastroenteritis viral [Recovered/Resolved]
